FAERS Safety Report 4838212-5 (Version None)
Quarter: 2005Q4

REPORT INFORMATION
  Report Type: 
  Country: None (occurrence: None)
  Receive Date: 20051123
  Receipt Date: 20051108
  Transmission Date: 20060501
  Serious: Yes (Hospitalization, Other)
  Sender: FDA-Public Use
  Company Number: 2005-02019

PATIENT
  Age: 69 Year
  Sex: Male

DRUGS (8)
  1. VELCADE [Suspect]
     Indication: MULTIPLE MYELOMA
     Dosage: 2.40 MG, INTRAVENOUS
     Route: 042
     Dates: start: 20040906, end: 20041004
  2. RAMIPRIL [Concomitant]
  3. DIGITOXIN TAB [Concomitant]
  4. METOPROLOL SUCCINATE [Concomitant]
  5. ASPIRIN [Concomitant]
  6. ISOSORBIDE MONONITRATE [Concomitant]
  7. ALLOPURINOL [Concomitant]
  8. NORVASC [Concomitant]

REACTIONS (12)
  - CATARACT OPERATION [None]
  - CONJUNCTIVITIS [None]
  - DIARRHOEA [None]
  - IMPAIRED DRIVING ABILITY [None]
  - PAIN OF SKIN [None]
  - POLYNEUROPATHY [None]
  - PRURITUS [None]
  - RASH [None]
  - SKIN BURNING SENSATION [None]
  - VISION BLURRED [None]
  - VISUAL ACUITY REDUCED [None]
  - VISUAL DISTURBANCE [None]
